FAERS Safety Report 20005969 (Version 1)
Quarter: 2021Q4

REPORT INFORMATION
  Report Type: Report from Study
  Country: US (occurrence: US)
  Receive Date: 20211027
  Receipt Date: 20211027
  Transmission Date: 20220303
  Serious: Yes (Death, Hospitalization, Other)
  Sender: FDA-Public Use
  Company Number: US-ACTELION-A-NJ2019-190579

PATIENT
  Age: 62 Year
  Sex: Male
  Weight: 94.5 kg

DRUGS (16)
  1. OPSUMIT [Suspect]
     Active Substance: MACITENTAN
     Indication: Portopulmonary hypertension
     Dosage: 10 MG, QD
     Route: 048
     Dates: start: 20190426, end: 202001
  2. UPTRAVI [Suspect]
     Active Substance: SELEXIPAG
     Indication: Portopulmonary hypertension
     Dosage: 200 MCG, BID
     Route: 048
     Dates: start: 20190501, end: 202001
  3. UPTRAVI [Suspect]
     Active Substance: SELEXIPAG
     Dosage: 200 MCG, BID
     Route: 048
     Dates: start: 202003
  4. UPTRAVI [Suspect]
     Active Substance: SELEXIPAG
     Route: 048
  5. FUROSEMIDE [Concomitant]
     Active Substance: FUROSEMIDE
     Indication: Oedema
     Dosage: 40 MG, BID
     Dates: start: 20190504
  6. MIDODRINE [Concomitant]
     Active Substance: MIDODRINE
     Dosage: 10 MG, TID
     Dates: start: 201905
  7. PANTOPRAZOLE [Concomitant]
     Active Substance: PANTOPRAZOLE
     Dosage: 40 MG, QD
     Dates: start: 201905
  8. PRAVASTATIN [Concomitant]
     Active Substance: PRAVASTATIN
     Dosage: 40 MG, QD
     Dates: start: 201905
  9. SPIRONOLACTONE [Concomitant]
     Active Substance: SPIRONOLACTONE
     Indication: Oedema
     Dosage: 25 MG, QD
     Dates: start: 20181227
  10. SPIRONOLACTONE [Concomitant]
     Active Substance: SPIRONOLACTONE
  11. ONDANSETRON [Concomitant]
     Active Substance: ONDANSETRON
     Dosage: 4 MG, TID
     Dates: start: 201905
  12. BREO ELLIPTA [Concomitant]
     Active Substance: FLUTICASONE FUROATE\VILANTEROL TRIFENATATE
     Dosage: 100MCG/25MCG DAILY
     Dates: start: 201905
  13. LACTULOSE [Concomitant]
     Active Substance: LACTULOSE
     Dosage: 30 ML, QD
     Dates: start: 201905
  14. TRAZODONE [Concomitant]
     Active Substance: TRAZODONE HYDROCHLORIDE
     Dosage: 1 MG, PRN
     Dates: start: 2019
  15. BUPROPION [Concomitant]
     Active Substance: BUPROPION
  16. SILDENAFIL CITRATE [Concomitant]
     Active Substance: SILDENAFIL CITRATE

REACTIONS (29)
  - Hypotension [Fatal]
  - Pulmonary hypertension [Fatal]
  - Acute kidney injury [Recovering/Resolving]
  - Subcapsular hepatic haematoma [Unknown]
  - Abdominal pain [Unknown]
  - Shock [Recovered/Resolved]
  - Ileus paralytic [Recovered/Resolved]
  - Right ventricular failure [Unknown]
  - Right ventricular dilatation [Unknown]
  - Pulmonary arterial pressure increased [Unknown]
  - Hypervolaemia [Unknown]
  - Dizziness postural [Unknown]
  - Malaise [Unknown]
  - Nausea [Unknown]
  - Chronic hepatic failure [Unknown]
  - Hepatic cirrhosis [Unknown]
  - Blood loss anaemia [Unknown]
  - Varices oesophageal [Unknown]
  - Oesophageal variceal ligation [Unknown]
  - Transfusion [Unknown]
  - Blood bilirubin increased [Recovering/Resolving]
  - Vascular stent insertion [Unknown]
  - Abnormal loss of weight [Not Recovered/Not Resolved]
  - Dizziness [Not Recovered/Not Resolved]
  - Dyspnoea [Unknown]
  - Oedema [Unknown]
  - Rash [Unknown]
  - Pruritus [Unknown]
  - Diarrhoea [Recovered/Resolved]

NARRATIVE: CASE EVENT DATE: 20190426
